FAERS Safety Report 8996999 (Version 1)
Quarter: 2013Q1

REPORT INFORMATION
  Report Type: Spontaneous
  Country: US (occurrence: None)
  Receive Date: 20130102
  Receipt Date: 20130102
  Transmission Date: 20140127
  Serious: No
  Sender: FDA-Public Use
  Company Number: None

PATIENT
  Sex: Female

DRUGS (1)
  1. COPAXONE [Suspect]
     Indication: MULTIPLE SCLEROSIS
     Dates: start: 20120229

REACTIONS (7)
  - Erythema [None]
  - Muscular weakness [None]
  - Dysstasia [None]
  - Tremor [None]
  - Feeling cold [None]
  - Injection site pruritus [None]
  - Drug dose omission [None]
